FAERS Safety Report 5525918-8 (Version None)
Quarter: 2007Q4

REPORT INFORMATION
  Report Type: 
  Country: None (occurrence: None)
  Receive Date: 20071126
  Receipt Date: 20071115
  Transmission Date: 20080405
  Serious: Yes (Other)
  Sender: FDA-Public Use
  Company Number: US-PFIZER INC-2007096394

PATIENT

DRUGS (1)
  1. ALDACTONE [Suspect]

REACTIONS (1)
  - PANCREATITIS [None]
